FAERS Safety Report 9413373 (Version 2)
Quarter: 2013Q3

REPORT INFORMATION
  Report Type: Report from Study
  Country: US (occurrence: US)
  Receive Date: 20130722
  Receipt Date: 20130808
  Transmission Date: 20140515
  Serious: Yes (Life-Threatening)
  Sender: FDA-Public Use
  Company Number: US-ACTELION-A-NJ2013-85102

PATIENT
  Age: 74 Year
  Sex: Female

DRUGS (4)
  1. TRACLEER [Suspect]
     Indication: PULMONARY ARTERIAL HYPERTENSION
     Dosage: 125 MG, UNK
     Route: 048
     Dates: end: 20130625
  2. TRACLEER [Suspect]
     Dosage: UNK
     Route: 048
  3. SILDENAFIL [Concomitant]
  4. COUMADIN [Concomitant]

REACTIONS (9)
  - Cardiac failure [Unknown]
  - Dyspnoea [Unknown]
  - Disorientation [Unknown]
  - Weight increased [Unknown]
  - Nausea [Unknown]
  - Fluid retention [Unknown]
  - Oedema [Unknown]
  - Headache [Unknown]
  - Dizziness [Unknown]
